FAERS Safety Report 20626659 (Version 7)
Quarter: 2022Q3

REPORT INFORMATION
  Report Type: Report from Study
  Country: BR (occurrence: None)
  Receive Date: 20220323
  Receipt Date: 20220807
  Transmission Date: 20221027
  Serious: Yes (Hospitalization)
  Sender: FDA-Public Use
  Company Number: BR-ROCHE-3055376

PATIENT
  Age: 80 Year
  Sex: Female
  Weight: 93.7 kg

DRUGS (25)
  1. TIRAGOLUMAB [Suspect]
     Active Substance: TIRAGOLUMAB
     Indication: Triple negative breast cancer
     Dosage: START DATE OF MOST RECENT DOSE OF STUDY DRUG PRIOR TO SAE 03/MAR/2022?DOSE LAST STUDY DRUG ADMIN PRI
     Route: 042
     Dates: start: 20210817
  2. ATEZOLIZUMAB [Suspect]
     Active Substance: ATEZOLIZUMAB
     Indication: Triple negative breast cancer
     Dosage: START DATE OF MOST RECENT DOSE OF STUDY DRUG PRIOR TO AE 03-MAR-2022
     Route: 041
     Dates: start: 20210817
  3. PACLITAXEL [Suspect]
     Active Substance: PACLITAXEL
     Indication: Triple negative breast cancer
     Dosage: START DATE OF MOST RECENT DOSE OF STUDY DRUG PRIOR TO SAE 03-MAR-2022?DOSE LAST STUDY DRUG ADMIN PRI
     Route: 042
     Dates: start: 20210817
  4. INDAPAMIDE [Concomitant]
     Active Substance: INDAPAMIDE
     Indication: Hypertension
     Route: 048
     Dates: start: 2018
  5. LOSARTAN [Concomitant]
     Active Substance: LOSARTAN
     Indication: Hypertension
     Route: 048
     Dates: start: 2018, end: 20220311
  6. AMLODIPINE BESYLATE [Concomitant]
     Active Substance: AMLODIPINE BESYLATE
     Indication: Hypertension
     Route: 048
     Dates: start: 2018
  7. SIMVASTATIN [Concomitant]
     Active Substance: SIMVASTATIN
     Indication: Dyslipidaemia
     Route: 048
     Dates: start: 2018
  8. ATENOLOL [Concomitant]
     Active Substance: ATENOLOL
     Indication: Hypertension
     Route: 048
     Dates: start: 2018
  9. LEVOTHYROXINE [Concomitant]
     Active Substance: LEVOTHYROXINE
     Indication: Hypothyroidism
     Dosage: 25 OTHER
     Route: 048
     Dates: start: 2018
  10. GLICLAZIDE [Concomitant]
     Active Substance: GLICLAZIDE
     Indication: Diabetes mellitus
     Route: 048
     Dates: start: 2018
  11. METFORMIN [Concomitant]
     Active Substance: METFORMIN HYDROCHLORIDE
     Indication: Diabetes mellitus
     Route: 048
     Dates: start: 2021
  12. DIPROSONE [Concomitant]
     Active Substance: BETAMETHASONE DIPROPIONATE
     Indication: Rash papular
     Route: 061
     Dates: start: 20210916
  13. DIPROSONE [Concomitant]
     Active Substance: BETAMETHASONE DIPROPIONATE
     Indication: Eczema
  14. SOAP [Concomitant]
     Active Substance: SOAP
     Indication: Rash papular
     Dates: start: 20210916
  15. PANTOPRAZOLE [Concomitant]
     Active Substance: PANTOPRAZOLE
     Indication: Abdominal pain upper
     Route: 048
     Dates: start: 20210930
  16. DOXEPIN [Concomitant]
     Active Substance: DOXEPIN
     Indication: Rash papular
     Dates: start: 20211020
  17. DOXEPIN [Concomitant]
     Active Substance: DOXEPIN
     Indication: Psoriasis
     Dates: start: 20220224, end: 20220330
  18. PREGABALIN [Concomitant]
     Active Substance: PREGABALIN
     Indication: Neuropathy peripheral
     Dates: start: 20211022
  19. CLOBETASOL [Concomitant]
     Active Substance: CLOBETASOL
     Indication: Rash papular
     Dosage: 1 OTHER
     Route: 061
     Dates: start: 20220105
  20. DAIVOBET [Concomitant]
     Active Substance: BETAMETHASONE DIPROPIONATE\CALCIPOTRIENE
     Indication: Psoriasis
     Dosage: 1 OTHER
     Route: 061
     Dates: start: 20220224, end: 20220330
  21. LIQUOR CARBONIS DETERGENS [Concomitant]
     Indication: Psoriasis
     Dosage: 1 OTHER
     Route: 048
     Dates: start: 20220224
  22. DIPYRONE [Concomitant]
     Active Substance: DIPYRONE
     Indication: Headache
     Dates: start: 20220214, end: 20220217
  23. PALONOSETRON [Concomitant]
     Active Substance: PALONOSETRON
     Indication: Premedication
     Dates: start: 20220303, end: 20220303
  24. FUROSEMIDE [Concomitant]
     Active Substance: FUROSEMIDE
     Indication: Blood creatinine increased
     Route: 048
     Dates: start: 20220313
  25. CEFUROXIME [Concomitant]
     Active Substance: CEFUROXIME
     Indication: Urinary tract infection
     Route: 048
     Dates: start: 20220314, end: 20220321

REACTIONS (1)
  - Tubulointerstitial nephritis [Recovered/Resolved]

NARRATIVE: CASE EVENT DATE: 20220309
